FAERS Safety Report 24096846 (Version 1)
Quarter: 2024Q3

REPORT INFORMATION
  Report Type: Spontaneous
  Country: US (occurrence: US)
  Receive Date: 20240716
  Receipt Date: 20240716
  Transmission Date: 20241016
  Serious: No
  Sender: GRIFOLS
  Company Number: US-IGSA-BIG0024186

PATIENT
  Sex: Female
  Weight: 72 kg

DRUGS (5)
  1. GAMUNEX-C [Suspect]
     Active Substance: HUMAN IMMUNOGLOBULIN G
     Indication: Product used for unknown indication
     Dosage: UNK UNKNOWN, UNKNOWN
     Route: 065
  2. BENADRYL [Concomitant]
     Active Substance: DIPHENHYDRAMINE HYDROCHLORIDE
  3. REMICADE [Concomitant]
     Active Substance: INFLIXIMAB
  4. PREDNISONE [Concomitant]
     Active Substance: PREDNISONE
  5. TYLENOL [Concomitant]
     Active Substance: ACETAMINOPHEN

REACTIONS (6)
  - Musculoskeletal stiffness [Unknown]
  - Hypoglycaemia [Unknown]
  - Jaw disorder [Unknown]
  - Malaise [Unknown]
  - Hyperhidrosis [Unknown]
  - Pyrexia [Unknown]
